FAERS Safety Report 19657366 (Version 1)
Quarter: 2021Q3

REPORT INFORMATION
  Report Type: Spontaneous
  Country: NO (occurrence: NO)
  Receive Date: 20210804
  Receipt Date: 20210804
  Transmission Date: 20211014
  Serious: Yes (Other)
  Sender: FDA-Public Use
  Company Number: NO-PFIZER INC-2021310288

PATIENT
  Sex: Female

DRUGS (8)
  1. ZOLOFT [Suspect]
     Active Substance: SERTRALINE HYDROCHLORIDE
     Indication: COMPULSIONS
  2. LAMICTAL [Concomitant]
     Active Substance: LAMOTRIGINE
     Indication: AFFECT LABILITY
     Dosage: UNK
  3. ZOLOFT [Suspect]
     Active Substance: SERTRALINE HYDROCHLORIDE
     Indication: OBSESSIVE THOUGHTS
     Dosage: UNK
  4. ABILIFY [Suspect]
     Active Substance: ARIPIPRAZOLE
     Indication: SCHIZOPHRENIA
  5. SOBRIL [Concomitant]
     Active Substance: OXAZEPAM
     Indication: SEDATION
     Dosage: 10 MG, 2X/DAY
  6. ABILIFY [Suspect]
     Active Substance: ARIPIPRAZOLE
     Indication: COMPULSIONS
     Dosage: 20 MG, 1X/DAY
     Dates: start: 20110101, end: 20201201
  7. ZOLOFT [Suspect]
     Active Substance: SERTRALINE HYDROCHLORIDE
     Indication: SCHIZOPHRENIA
  8. ABILIFY [Suspect]
     Active Substance: ARIPIPRAZOLE
     Indication: OBSESSIVE THOUGHTS

REACTIONS (9)
  - Suicidal ideation [Unknown]
  - Depressed mood [Unknown]
  - Off label use [Unknown]
  - Anxiety [Unknown]
  - Restlessness [Unknown]
  - Product dose omission issue [Unknown]
  - Obsessive-compulsive disorder [Unknown]
  - Quality of life decreased [Unknown]
  - Impaired work ability [Unknown]

NARRATIVE: CASE EVENT DATE: 20110101
